FAERS Safety Report 7361754-8 (Version None)
Quarter: 2011Q1

REPORT INFORMATION
  Report Type: 
  Country: None (occurrence: None)
  Receive Date: 20110318
  Receipt Date: 20110307
  Transmission Date: 20110831
  Serious: Yes (Other)
  Sender: FDA-Public Use
  Company Number: JP-MERCK-1103USA01259

PATIENT
  Sex: Male

DRUGS (2)
  1. LOXONIN [Concomitant]
     Route: 048
     Dates: end: 20110304
  2. PEPCID RPD [Suspect]
     Route: 048
     Dates: end: 20110304

REACTIONS (1)
  - URINARY RETENTION [None]
